FAERS Safety Report 24810115 (Version 1)
Quarter: 2025Q1

REPORT INFORMATION
  Report Type: Spontaneous
  Country: US (occurrence: US)
  Receive Date: 20250106
  Receipt Date: 20250106
  Transmission Date: 20250409
  Serious: No
  Sender: ANI
  Company Number: US-ANIPHARMA-2024-US-049304

PATIENT
  Age: 33 Year
  Sex: Female
  Weight: 128.37 kg

DRUGS (10)
  1. MAGNESIUM [Concomitant]
     Active Substance: MAGNESIUM
  2. VITAMIN B COMPLEX [Concomitant]
     Active Substance: CYANOCOBALAMIN\DEXPANTHENOL\NIACINAMIDE\PYRIDOXINE HYDROCHLORIDE\RIBOFLAVIN 5^-PHOSPHATE SODIUM\THIA
  3. FLUVOXAMINE MALEATE [Suspect]
     Active Substance: FLUVOXAMINE MALEATE
     Indication: Obsessive-compulsive disorder
     Route: 048
     Dates: end: 20240910
  4. ATIVAN [Concomitant]
     Active Substance: LORAZEPAM
  5. PRAZOSIN [Concomitant]
     Active Substance: PRAZOSIN
  6. HALDOL [Concomitant]
     Active Substance: HALOPERIDOL
  7. LOSARTAN [Concomitant]
     Active Substance: LOSARTAN
  8. TOPIRAMATE [Concomitant]
     Active Substance: TOPIRAMATE
  9. MELATONIN [Concomitant]
     Active Substance: MELATONIN
  10. VITAMIN D3 [Concomitant]
     Active Substance: CHOLECALCIFEROL

REACTIONS (3)
  - Rash [Recovered/Resolved]
  - Pruritus [Recovered/Resolved]
  - Product use in unapproved indication [Not Recovered/Not Resolved]
